FAERS Safety Report 9120314 (Version 2)
Quarter: 2014Q3

REPORT INFORMATION
  Report Type: Spontaneous
  Country: US (occurrence: US)
  Receive Date: 20130226
  Receipt Date: 20140827
  Transmission Date: 20150326
  Serious: Yes (Hospitalization, Other)
  Sender: FDA-Public Use
  Company Number: US-009507513-2010SP042538

PATIENT
  Sex: Female
  Weight: 99.34 kg

DRUGS (4)
  1. AGGRENOX [Suspect]
     Active Substance: ASPIRIN\DIPYRIDAMOLE
     Indication: CEREBROVASCULAR ACCIDENT
  2. NUVARING [Suspect]
     Active Substance: ETHINYL ESTRADIOL\ETONOGESTREL
     Indication: CONTRACEPTION
     Dosage: 1 DF, QM
     Route: 067
     Dates: start: 200601, end: 200808
  3. PHENTERMINE [Concomitant]
     Active Substance: PHENTERMINE
     Indication: WEIGHT DECREASED
     Dosage: 37.5 MG, UNK
     Dates: end: 20080703
  4. NUVARING [Suspect]
     Active Substance: ETHINYL ESTRADIOL\ETONOGESTREL
     Indication: MENORRHAGIA

REACTIONS (12)
  - Headache [Unknown]
  - Anogenital warts [Unknown]
  - Vulvovaginitis [Unknown]
  - Rhinitis allergic [Unknown]
  - Conjunctivitis allergic [Unknown]
  - Venous thrombosis [Recovered/Resolved]
  - Cerebrovascular accident [Recovered/Resolved]
  - Hyperlipidaemia [Unknown]
  - Contusion [Unknown]
  - Dysphagia [Unknown]
  - Road traffic accident [Unknown]
  - Menorrhagia [Unknown]

NARRATIVE: CASE EVENT DATE: 20060321
